FAERS Safety Report 22050912 (Version 1)
Quarter: 2023Q1

REPORT INFORMATION
  Report Type: Spontaneous
  Country: US (occurrence: None)
  Receive Date: 20230301
  Receipt Date: 20230301
  Transmission Date: 20230417
  Serious: Yes (Other)
  Sender: FDA-Public Use
  Company Number: None

PATIENT
  Age: 33 Year
  Sex: Female

DRUGS (2)
  1. AMBRISENTAN [Suspect]
     Active Substance: AMBRISENTAN
     Indication: Pulmonary arterial hypertension
     Dosage: FREQUENCY : DAILY;?
     Route: 048
     Dates: start: 20200515
  2. TADALAFIL [Suspect]
     Active Substance: TADALAFIL

REACTIONS (3)
  - Dizziness [None]
  - Palpitations [None]
  - Fibrin D dimer increased [None]

NARRATIVE: CASE EVENT DATE: 20230204
